FAERS Safety Report 12964551 (Version 2)
Quarter: 2017Q1

REPORT INFORMATION
  Report Type: Spontaneous
  Country: CA (occurrence: CA)
  Receive Date: 20161122
  Receipt Date: 20170109
  Transmission Date: 20170428
  Serious: Yes (Other)
  Sender: FDA-Public Use
  Company Number: CA-PFIZER INC-2016532845

PATIENT
  Age: 67 Year
  Sex: Male

DRUGS (2)
  1. METHYLPREDNISOLONE SODIUM SUCCINATE. [Suspect]
     Active Substance: METHYLPREDNISOLONE SODIUM SUCCINATE
     Indication: ORGANISING PNEUMONIA
     Dosage: 10 MG/KG, UNK
     Route: 042
  2. PREDNISONE. [Suspect]
     Active Substance: PREDNISONE
     Indication: ORGANISING PNEUMONIA
     Dosage: 1 MG/KG, UNK (HIGH-DOSE)
     Route: 048

REACTIONS (1)
  - Diabetes mellitus [Unknown]
